FAERS Safety Report 20610299 (Version 1)
Quarter: 2022Q1

REPORT INFORMATION
  Report Type: Spontaneous
  Country: FR (occurrence: FR)
  Receive Date: 20220318
  Receipt Date: 20220318
  Transmission Date: 20220423
  Serious: Yes (Congenital Anomaly, Other)
  Sender: FDA-Public Use
  Company Number: FR-ABBVIE-22K-056-4321369-00

PATIENT

DRUGS (1)
  1. VALPROATE SODIUM [Suspect]
     Active Substance: VALPROATE SODIUM
     Indication: Maternal exposure timing unspecified
     Route: 064

REACTIONS (14)
  - Limb malformation [Unknown]
  - Speech disorder developmental [Unknown]
  - Learning disorder [Unknown]
  - Behaviour disorder [Unknown]
  - Disturbance in attention [Unknown]
  - Hypotonia [Unknown]
  - Psychomotor retardation [Unknown]
  - Educational problem [Unknown]
  - Anxiety [Unknown]
  - Ear disorder [Unknown]
  - Nasal disorder [Unknown]
  - Pharyngeal disorder [Unknown]
  - Visual impairment [Unknown]
  - Foetal exposure during pregnancy [Unknown]
